FAERS Safety Report 10729284 (Version 1)
Quarter: 2015Q1

REPORT INFORMATION
  Report Type: Spontaneous
  Country: IN (occurrence: None)
  Receive Date: 20150120
  Receipt Date: 20150120
  Transmission Date: 20150721
  Serious: Yes (Other)
  Sender: FDA-Public Use
  Company Number: None

PATIENT
  Age: 26 Year
  Sex: Female
  Weight: 80 kg

DRUGS (2)
  1. ALPRAZOLAM. [Suspect]
     Active Substance: ALPRAZOLAM
  2. K-TAB [Suspect]
     Active Substance: POTASSIUM CHLORIDE

REACTIONS (1)
  - Intentional overdose [None]

NARRATIVE: CASE EVENT DATE: 20150116
